FAERS Safety Report 9163272 (Version 1)
Quarter: 2013Q1

REPORT INFORMATION
  Report Type: Other
  Country: JP (occurrence: JP)
  Receive Date: 20130314
  Receipt Date: 20130314
  Transmission Date: 20140127
  Serious: Yes (Other)
  Sender: FDA-Public Use
  Company Number: JP-COVIDIEN/TYCO HEALTHCARE/MALLINCKRODT-T201301131

PATIENT
  Age: 73 Year
  Sex: Female

DRUGS (1)
  1. OPTIRAY [Suspect]
     Dosage: 100 ML, SINGLE
     Route: 042
     Dates: start: 201204, end: 201204

REACTIONS (1)
  - Anaphylactoid reaction [Unknown]
